FAERS Safety Report 21861690 (Version 1)
Quarter: 2023Q1

REPORT INFORMATION
  Report Type: Spontaneous
  Country: US (occurrence: US)
  Receive Date: 20230113
  Receipt Date: 20230113
  Transmission Date: 20230418
  Serious: Yes (Other)
  Sender: FDA-Public Use
  Company Number: US-ALLERGAN-2300183US

PATIENT
  Sex: Female
  Weight: 64.863 kg

DRUGS (3)
  1. REFRESH PLUS [Suspect]
     Active Substance: CARBOXYMETHYLCELLULOSE SODIUM
     Indication: Dry eye
     Dosage: 4-5 TIMES DAILY
     Route: 047
  2. Children?s chewable complete multivitamins [Concomitant]
  3. TUMS [Concomitant]
     Active Substance: CALCIUM CARBONATE
     Indication: Gastrooesophageal reflux disease
     Dosage: UNK

REACTIONS (10)
  - Cataract [Recovering/Resolving]
  - Eye contusion [Recovering/Resolving]
  - Allergy to chemicals [Recovering/Resolving]
  - Conjunctivitis [Recovering/Resolving]
  - COVID-19 [Recovering/Resolving]
  - Cough [Recovered/Resolved]
  - Incorrect dose administered [Unknown]
  - Photophobia [Recovering/Resolving]
  - Eye irritation [Recovering/Resolving]
  - Ocular hyperaemia [Unknown]

NARRATIVE: CASE EVENT DATE: 20180101
